FAERS Safety Report 5201994-7 (Version None)
Quarter: 2007Q1

REPORT INFORMATION
  Report Type: 
  Country: None (occurrence: None)
  Receive Date: 20070109
  Receipt Date: 20070103
  Transmission Date: 20070707
  Serious: Yes (Other)
  Sender: FDA-Public Use
  Company Number: 2007UW00171

PATIENT
  Sex: Male

DRUGS (1)
  1. NEXIUM [Suspect]
     Indication: BARRETT'S OESOPHAGUS
     Route: 048
     Dates: start: 20010101

REACTIONS (1)
  - OSTEONECROSIS [None]
